FAERS Safety Report 7224472-2 (Version None)
Quarter: 2011Q1

REPORT INFORMATION
  Report Type: 
  Country: None (occurrence: None)
  Receive Date: 20110113
  Receipt Date: 20110111
  Transmission Date: 20110831
  Serious: No
  Sender: FDA-Public Use
  Company Number: US-PFIZER INC-2011007420

PATIENT
  Sex: Female
  Weight: 66.7 kg

DRUGS (2)
  1. RELPAX [Suspect]
     Indication: HEADACHE
  2. RELPAX [Suspect]
     Indication: MIGRAINE
     Dosage: 40 MG, 1X/DAY
     Route: 048
     Dates: start: 20101017, end: 20101017

REACTIONS (1)
  - URTICARIA [None]
